FAERS Safety Report 15152924 (Version 2)
Quarter: 2018Q3

REPORT INFORMATION
  Report Type: Spontaneous
  Country: US (occurrence: US)
  Receive Date: 20180717
  Receipt Date: 20180817
  Transmission Date: 20181010
  Serious: No
  Sender: FDA-Public Use
  Company Number: US-PFIZER INC-2018279912

PATIENT
  Age: 62 Year
  Sex: Male
  Weight: 91 kg

DRUGS (10)
  1. LYRICA [Concomitant]
     Active Substance: PREGABALIN
     Indication: FIBROMYALGIA
     Dosage: 75 MG, 3X/DAY
     Route: 048
  2. CYMBALTA [Concomitant]
     Active Substance: DULOXETINE HYDROCHLORIDE
     Indication: PAIN
     Dosage: 60 MG, DAILY
  3. HYDROCODONE/ACETAMINOPHEN [Concomitant]
     Active Substance: ACETAMINOPHEN\HYDROCODONE
     Indication: BREAKTHROUGH PAIN
     Dosage: UNK, 4X/DAY [HYDROCODONE BITARTRATE: 5 MG] /PARACETAMOL: 325 MG]
  4. LYRICA [Concomitant]
     Active Substance: PREGABALIN
     Indication: NEUROPATHY PERIPHERAL
  5. MORPHINE SULFATE. [Concomitant]
     Active Substance: MORPHINE SULFATE
     Indication: PAIN
     Dosage: 100 MG, 3X/DAY
     Route: 048
  6. CELEBREX [Suspect]
     Active Substance: CELECOXIB
     Indication: FIBROMYALGIA
  7. CELEBREX [Suspect]
     Active Substance: CELECOXIB
     Indication: OSTEOARTHRITIS
  8. MORPHINE SULFATE. [Concomitant]
     Active Substance: MORPHINE SULFATE
     Dosage: 30 MG, 3X/DAY
     Route: 048
  9. HYDROCODONE [Concomitant]
     Active Substance: HYDROCODONE
     Indication: BREAKTHROUGH PAIN
     Dosage: UNK, AS NEEDED (7.5/325 MG TABLET BY MOUTH AS NEEDED UP TO 4 TIMES A DAY)
     Route: 048
  10. CELEBREX [Suspect]
     Active Substance: CELECOXIB
     Indication: NEUROPATHY PERIPHERAL
     Dosage: 200 MG, 1X/DAY
     Route: 048
     Dates: end: 20180711

REACTIONS (2)
  - Chest pain [Recovered/Resolved]
  - Muscle spasms [Recovering/Resolving]

NARRATIVE: CASE EVENT DATE: 20180711
